FAERS Safety Report 25514604 (Version 1)
Quarter: 2025Q3

REPORT INFORMATION
  Report Type: Spontaneous
  Country: US (occurrence: US)
  Receive Date: 20250703
  Receipt Date: 20250703
  Transmission Date: 20251021
  Serious: No
  Sender: RADIUS PHARM
  Company Number: US-RADIUS HEALTH INC.-2025US000500

PATIENT
  Sex: Female

DRUGS (1)
  1. TYMLOS [Suspect]
     Active Substance: ABALOPARATIDE
     Indication: Senile osteoporosis
     Route: 058

REACTIONS (6)
  - Injection site irritation [Unknown]
  - Headache [Unknown]
  - Injection site erythema [Unknown]
  - Globulins decreased [Unknown]
  - Blood bilirubin increased [Unknown]
  - Product dose omission issue [Unknown]
